FAERS Safety Report 11151809 (Version 1)
Quarter: 2015Q2

REPORT INFORMATION
  Report Type: Spontaneous
  Country: CA (occurrence: CA)
  Receive Date: 20150601
  Receipt Date: 20150601
  Transmission Date: 20150821
  Serious: Yes (Hospitalization)
  Sender: FDA-Public Use
  Company Number: CA-BAUSCH-BL-2015-014481

PATIENT
  Age: 74 Year
  Sex: Male
  Weight: 89.39 kg

DRUGS (5)
  1. FLUOROURACIL. [Suspect]
     Active Substance: FLUOROURACIL
     Indication: ADENOCARCINOMA OF COLON
     Route: 042
     Dates: start: 20140818
  2. LEUCOVORIN CALCIUM. [Suspect]
     Active Substance: LEUCOVORIN CALCIUM
     Indication: ADENOCARCINOMA OF COLON
     Dosage: OVER 2 HOURS ON DAY 1
     Route: 042
     Dates: start: 20140818
  3. CELECOXIB, PLACEBO (CODE NOT BROKEN) [Suspect]
     Active Substance: CELECOXIB
     Indication: ADENOCARCINOMA OF COLON
     Route: 048
     Dates: end: 20140912
  4. FLUOROURACIL. [Suspect]
     Active Substance: FLUOROURACIL
     Dosage: OVER 46-48 HOURS FROM DAY 1
     Route: 042
     Dates: start: 20140818
  5. ELOXATIN [Suspect]
     Active Substance: OXALIPLATIN
     Indication: ADENOCARCINOMA OF COLON
     Dosage: OVER 2 HOURS ON DAY 1
     Route: 042
     Dates: start: 20140818

REACTIONS (2)
  - Pyrexia [Not Recovered/Not Resolved]
  - Diarrhoea [Not Recovered/Not Resolved]

NARRATIVE: CASE EVENT DATE: 20140913
